FAERS Safety Report 9524696 (Version 2)
Quarter: 2013Q4

REPORT INFORMATION
  Report Type: Report from Study
  Country: US (occurrence: US)
  Receive Date: 20130916
  Receipt Date: 20131004
  Transmission Date: 20140711
  Serious: Yes (Death, Hospitalization)
  Sender: FDA-Public Use
  Company Number: PHEH2013US019293

PATIENT
  Age: 59 Year
  Sex: Male

DRUGS (15)
  1. TASIGNA [Suspect]
     Indication: CHRONIC MYELOID LEUKAEMIA
     Dosage: 400 MG, Q12H
     Route: 048
     Dates: start: 20110420, end: 20120703
  2. TASIGNA [Suspect]
     Dosage: 200 MG, BID
     Route: 048
     Dates: start: 20120710
  3. TASIGNA [Suspect]
     Dosage: 200 MG IN MORNING AND 400 MG IN NIGHT
     Route: 048
     Dates: end: 20130809
  4. PLAVIX [Suspect]
  5. COUMADINE [Suspect]
  6. ALLOPURINOL [Concomitant]
  7. ASPIRIN [Concomitant]
  8. DOXAZOSIN [Concomitant]
  9. GLIPIZIDE [Concomitant]
  10. LASIX [Concomitant]
  11. LISINOPRIL [Concomitant]
  12. METFORMIN [Concomitant]
  13. METOPROLOL [Concomitant]
  14. XANAX [Concomitant]
  15. SOLATOL [Concomitant]

REACTIONS (3)
  - Cerebrovascular accident [Fatal]
  - Cerebral haemorrhage [Fatal]
  - Diarrhoea [Unknown]
